FAERS Safety Report 9598310 (Version 1)
Quarter: 2013Q4

REPORT INFORMATION
  Report Type: Spontaneous
  Country: US (occurrence: US)
  Receive Date: 20131004
  Receipt Date: 20131004
  Transmission Date: 20140711
  Serious: No
  Sender: FDA-Public Use
  Company Number: US-AMGEN-USASP2013022930

PATIENT
  Age: 52 Year
  Sex: Female

DRUGS (3)
  1. ENBREL [Suspect]
     Indication: RHEUMATOID ARTHRITIS
     Dosage: 50 MG, QWK
     Dates: start: 20130323
  2. SULFASALAZINE [Concomitant]
     Dosage: 6 TABS, QD
  3. LEFLUNOMIDE [Concomitant]
     Dosage: 25 MG, QD, FOR THREE YEARS

REACTIONS (1)
  - Headache [Not Recovered/Not Resolved]
